FAERS Safety Report 7436789-7 (Version None)
Quarter: 2011Q2

REPORT INFORMATION
  Report Type: 
  Country: None (occurrence: None)
  Receive Date: 20110426
  Receipt Date: 20110421
  Transmission Date: 20111010
  Serious: No
  Sender: FDA-Public Use
  Company Number: US-PFIZER INC-2011087278

PATIENT
  Sex: Male

DRUGS (4)
  1. RAPAMUNE [Suspect]
     Dosage: 2 MG, 1X/DAY
  2. CALCIUM [Concomitant]
     Dosage: UNK
  3. RAPAMUNE [Suspect]
     Indication: RENAL TRANSPLANT
     Dosage: 3 MG, 1X/DAY
     Route: 048
     Dates: start: 20110101
  4. RAPAMUNE [Suspect]
     Dosage: 2.5 MG, 1X/DAY

REACTIONS (3)
  - INFECTION [None]
  - PYREXIA [None]
  - WEIGHT INCREASED [None]
